FAERS Safety Report 15667689 (Version 3)
Quarter: 2018Q4

REPORT INFORMATION
  Report Type: Report from Study
  Country: FR (occurrence: FR)
  Receive Date: 20181128
  Receipt Date: 20181207
  Transmission Date: 20190205
  Serious: Yes (Life-Threatening)
  Sender: FDA-Public Use
  Company Number: FR-PFIZER INC-2018491381

PATIENT
  Weight: 44 kg

DRUGS (6)
  1. GEMTUZUMAB OZOGAMICIN [Suspect]
     Active Substance: GEMTUZUMAB OZOGAMICIN
     Indication: ACUTE MYELOID LEUKAEMIA
     Dosage: 4.4 MG, TWO TIMES A DAY
     Route: 042
     Dates: start: 20181008, end: 20181011
  2. AZTREONAM. [Concomitant]
     Active Substance: AZTREONAM
     Indication: PYREXIA
     Dosage: 2 G, 3X/DAY
     Dates: start: 20181102
  3. CASPOFUNGINE [Concomitant]
     Active Substance: CASPOFUNGIN
     Indication: PYREXIA
     Dosage: 50 MG, 2X/DAY
     Dates: start: 20181030
  4. MERONEM [Concomitant]
     Active Substance: MEROPENEM
     Indication: PYREXIA
     Dosage: 2 G, 3X/DAY
     Dates: start: 20181030
  5. TIENAM [Concomitant]
     Active Substance: CILASTATIN SODIUM\IMIPENEM
     Indication: PYREXIA
     Dosage: 1 G, 3X/DAY
     Dates: start: 20181022, end: 20181030
  6. MITOXANTRONE [Suspect]
     Active Substance: MITOXANTRONE HYDROCHLORIDE
     Indication: ACUTE MYELOID LEUKAEMIA
     Dosage: 18 MG, TWO TIMES A DAY
     Route: 042
     Dates: start: 20181005, end: 20181008

REACTIONS (1)
  - Hypotension [Recovered/Resolved]

NARRATIVE: CASE EVENT DATE: 20181102
